FAERS Safety Report 14923030 (Version 6)
Quarter: 2018Q4

REPORT INFORMATION
  Report Type: Report from Study
  Country: CA (occurrence: CA)
  Receive Date: 20180522
  Receipt Date: 20181010
  Transmission Date: 20190204
  Serious: Yes (Other)
  Sender: FDA-Public Use
  Company Number: CA-ROCHE-2124735

PATIENT
  Age: 55 Year
  Sex: Female

DRUGS (2)
  1. OCREVUS [Suspect]
     Active Substance: OCRELIZUMAB
     Indication: RELAPSING-REMITTING MULTIPLE SCLEROSIS
     Dosage: DAY 0 AND 14 THEN 600 MG Q 6 MONTHS
     Route: 042
     Dates: start: 20180209
  2. DURICEF [Suspect]
     Active Substance: CEFADROXIL
     Indication: PRODUCT USED FOR UNKNOWN INDICATION
     Route: 065

REACTIONS (19)
  - Axillary mass [Not Recovered/Not Resolved]
  - Fatigue [Unknown]
  - Cellulitis [Not Recovered/Not Resolved]
  - Asthma [Recovering/Resolving]
  - Dyspnoea [Recovered/Resolved]
  - Sinus congestion [Unknown]
  - Cough [Not Recovered/Not Resolved]
  - Subcutaneous abscess [Recovering/Resolving]
  - Respiratory disorder [Recovered/Resolved]
  - Speech disorder [Recovered/Resolved]
  - Off label use [Unknown]
  - Eye disorder [Not Recovered/Not Resolved]
  - Poor venous access [Recovered/Resolved]
  - Pharyngeal disorder [Not Recovered/Not Resolved]
  - Myalgia [Recovering/Resolving]
  - Fatigue [Not Recovered/Not Resolved]
  - Hypoaesthesia [Not Recovered/Not Resolved]
  - Throat irritation [Not Recovered/Not Resolved]
  - Somnolence [Unknown]

NARRATIVE: CASE EVENT DATE: 20180209
